FAERS Safety Report 7096170-X (Version None)
Quarter: 2010Q4

REPORT INFORMATION
  Report Type: 
  Country: None (occurrence: None)
  Receive Date: 20101111
  Receipt Date: 20101103
  Transmission Date: 20110411
  Serious: Yes (Other)
  Sender: FDA-Public Use
  Company Number: CA-PFIZER INC-2010142660

PATIENT
  Age: 55 Year
  Sex: Female

DRUGS (2)
  1. SIROLIMUS [Suspect]
     Dosage: UNK
     Dates: start: 20000101
  2. PROGRAF [Suspect]
     Indication: RENAL TRANSPLANT
     Dosage: UNK
     Dates: start: 20000101

REACTIONS (2)
  - ANAL CANCER METASTATIC [None]
  - METASTASES TO LIVER [None]
